FAERS Safety Report 10182688 (Version 2)
Quarter: 2014Q2

REPORT INFORMATION
  Report Type: Spontaneous
  Country: US (occurrence: None)
  Receive Date: 20140516
  Receipt Date: 20140530
  Transmission Date: 20141212
  Serious: Yes (Hospitalization)
  Sender: FDA-Public Use
  Company Number: 2014SGN00520

PATIENT
  Age: 71 Year
  Sex: Female
  Weight: 52.2 kg

DRUGS (14)
  1. BRENTUXIMAB VEDOTIN [Suspect]
     Indication: HODGKIN^S DISEASE
     Dosage: 1.8 MG/KG, Q12D, INTRAVENOUS
     Route: 042
     Dates: start: 20131219, end: 20140423
  2. ASPIRIN (ASPIRIN) [Concomitant]
  3. ATENOLOL (ATENOLOL) [Concomitant]
  4. BENADRYL (DIPHENHYDRAMINE HYDROCHLORIDE) [Concomitant]
  5. COMPAZINE (PROCHLORPERAZINE EDISYLATE) [Concomitant]
  6. LASIX (FUROSEMIDE) [Concomitant]
  7. LORAZEPAM (LORAZEPAM) [Concomitant]
  8. MIRTAZAPINE (MIRTAZAPINE) [Concomitant]
  9. NEULASTA (PEGFILGRASTIM) [Concomitant]
  10. NIASPAN [Concomitant]
  11. ONDANSETRON (ONDANSETRON) [Concomitant]
  12. PREDNISONE (PREDNISONE) [Concomitant]
  13. SIMVASTATIN (SIMVASTATIN) [Concomitant]
  14. TESSALON [Concomitant]

REACTIONS (5)
  - Deep vein thrombosis [None]
  - Asthenia [None]
  - Rash [None]
  - Cellulitis [None]
  - Dyspnoea [None]
